FAERS Safety Report 7053628-7 (Version None)
Quarter: 2010Q4

REPORT INFORMATION
  Report Type: 
  Country: None (occurrence: None)
  Receive Date: 20101020
  Receipt Date: 20101013
  Transmission Date: 20110411
  Serious: Yes (Other)
  Sender: FDA-Public Use
  Company Number: JP-BAYER-201015114BYL

PATIENT
  Age: 73 Year
  Sex: Female

DRUGS (2)
  1. ASPIRIN [Suspect]
     Indication: POSTOPERATIVE CARE
     Route: 048
     Dates: end: 20090301
  2. ASPIRIN [Suspect]
     Route: 048
     Dates: start: 20090301

REACTIONS (1)
  - LARYNGEAL GRANULOMA [None]
